FAERS Safety Report 7577722-7 (Version None)
Quarter: 2011Q2

REPORT INFORMATION
  Report Type: 
  Country: None (occurrence: None)
  Receive Date: 20110628
  Receipt Date: 20110622
  Transmission Date: 20111010
  Serious: Yes (Disabling, Other)
  Sender: FDA-Public Use
  Company Number: GB-PFIZER INC-2011139431

PATIENT
  Age: 67 Year
  Sex: Female

DRUGS (10)
  1. TOLTERODINE TARTRATE [Suspect]
     Dosage: UNK
  2. TRIAMTERENE [Suspect]
     Dosage: UNK
  3. LACTULOSE [Concomitant]
  4. RANITIDINE [Concomitant]
  5. ALLOPURINOL [Concomitant]
  6. WARFARIN [Concomitant]
  7. CALCICHEW [Concomitant]
  8. ACETAMINOPHEN [Concomitant]
  9. CO-DYDRAMOL [Concomitant]
  10. FENOFIBRIC ACID [Suspect]
     Indication: BREAST CANCER FEMALE
     Dosage: 2.5 MG, UNK
     Route: 048
     Dates: start: 20110101, end: 20110101

REACTIONS (5)
  - MOBILITY DECREASED [None]
  - MUSCULOSKELETAL STIFFNESS [None]
  - ARTHRALGIA [None]
  - MYALGIA [None]
  - ABASIA [None]
